FAERS Safety Report 4929636-6 (Version None)
Quarter: 2006Q1

REPORT INFORMATION
  Report Type: 
  Country: None (occurrence: None)
  Receive Date: 20060224
  Receipt Date: 20060211
  Transmission Date: 20060701
  Serious: Yes (Hospitalization, Other)
  Sender: FDA-Public Use
  Company Number: 2006021541

PATIENT
  Sex: Male
  Weight: 71.6683 kg

DRUGS (12)
  1. VIAGRA [Suspect]
     Indication: ERECTILE DYSFUNCTION
     Dosage: 50 MG (50 MG, AS NECESSARY), ORAL
     Route: 048
  2. ACTOS [Concomitant]
  3. FISH OIL (FISH OIL) [Concomitant]
  4. VITAMIN B12 [Concomitant]
  5. CHROMIUM PICOLINATE (CHROMIUM PICOLINATE) [Concomitant]
  6. MULTIVITAMIN [Concomitant]
  7. ECOTRIN (ACETYLSALICYLIC ACID) [Concomitant]
  8. LIPITOR [Concomitant]
  9. DIOVAN ^CIBA-GEIGY^ (VALSARTAN) [Concomitant]
  10. HUMULIN R [Concomitant]
  11. LANTUS [Concomitant]
  12. MELATONIN (MELATONIN) [Concomitant]

REACTIONS (8)
  - ARRHYTHMIA [None]
  - BLOOD TESTOSTERONE DECREASED [None]
  - CARDIAC VALVE DISEASE [None]
  - CEREBROVASCULAR ACCIDENT [None]
  - DRUG INEFFECTIVE [None]
  - HYPERTENSION [None]
  - PALPITATIONS [None]
  - TOOTH ABSCESS [None]
